FAERS Safety Report 10555050 (Version 1)
Quarter: 2014Q4

REPORT INFORMATION
  Report Type: Spontaneous
  Country: US (occurrence: None)
  Receive Date: 20141029
  Receipt Date: 20141029
  Transmission Date: 20150529
  Serious: No
  Sender: FDA-Public Use
  Company Number: None

PATIENT
  Age: 69 Year
  Sex: Male
  Weight: 85.28 kg

DRUGS (1)
  1. AZILECT [Suspect]
     Active Substance: RASAGILINE MESYLATE
     Indication: PARKINSON^S DISEASE
     Dosage: 1 PILL
     Route: 048
     Dates: start: 20140814, end: 20141025

REACTIONS (4)
  - Dyskinesia [None]
  - Dyspnoea [None]
  - Neck pain [None]
  - Dry mouth [None]

NARRATIVE: CASE EVENT DATE: 20141025
